FAERS Safety Report 23246065 (Version 1)
Quarter: 2023Q4

REPORT INFORMATION
  Report Type: Other
  Country: GB (occurrence: None)
  Receive Date: 20231130
  Receipt Date: 20231130
  Transmission Date: 20240110
  Serious: Yes (Other)
  Sender: FDA-Public Use
  Company Number: GB-ROCHE-3464134

PATIENT
  Sex: Male

DRUGS (9)
  1. RITUXIMAB [Suspect]
     Active Substance: RITUXIMAB
     Indication: Nephrotic syndrome
     Route: 065
  2. MYCOPHENOLATE MOFETIL [Suspect]
     Active Substance: MYCOPHENOLATE MOFETIL
     Indication: Nephrotic syndrome
     Route: 065
  3. PREDNISOLONE [Suspect]
     Active Substance: PREDNISOLONE
     Indication: Nephrotic syndrome
     Route: 048
  4. METHYLPREDNISOLONE [Suspect]
     Active Substance: METHYLPREDNISOLONE
     Indication: Nephrotic syndrome
     Route: 042
  5. CYCLOPHOSPHAMIDE [Suspect]
     Active Substance: CYCLOPHOSPHAMIDE
     Indication: Nephrotic syndrome
     Route: 048
  6. LEVAMISOLE [Suspect]
     Active Substance: LEVAMISOLE
     Indication: Nephrotic syndrome
     Route: 065
  7. TACROLIMUS [Suspect]
     Active Substance: TACROLIMUS
     Indication: Nephrotic syndrome
     Route: 065
  8. OFATUMUMAB [Concomitant]
     Active Substance: OFATUMUMAB
     Dosage: SINGLE TEST DOSE
     Route: 065
     Dates: start: 202105
  9. OFATUMUMAB [Concomitant]
     Active Substance: OFATUMUMAB
     Dosage: FULL DOSE 2 WEEKS LATER
     Route: 065

REACTIONS (4)
  - Posterior reversible encephalopathy syndrome [Unknown]
  - Sepsis [Unknown]
  - Atrial thrombosis [Unknown]
  - Treatment failure [Unknown]
